FAERS Safety Report 8387081-8 (Version None)
Quarter: 2012Q2

REPORT INFORMATION
  Report Type: 
  Country: None (occurrence: None)
  Receive Date: 20120525
  Receipt Date: 20120518
  Transmission Date: 20120825
  Serious: Yes (Hospitalization)
  Sender: FDA-Public Use
  Company Number: US-ACTELION-A-US2012-66099

PATIENT

DRUGS (3)
  1. REVATIO [Concomitant]
  2. CELLCEPT [Concomitant]
  3. TRACLEER [Suspect]
     Indication: PULMONARY ARTERIAL HYPERTENSION
     Dosage: UNK
     Route: 048
     Dates: start: 20090318

REACTIONS (3)
  - GAIT DISTURBANCE [None]
  - SPINAL DISORDER [None]
  - BACK PAIN [None]
